FAERS Safety Report 23259505 (Version 2)
Quarter: 2023Q4

REPORT INFORMATION
  Report Type: Spontaneous
  Country: AU (occurrence: AU)
  Receive Date: 20231204
  Receipt Date: 20231211
  Transmission Date: 20240110
  Serious: Yes (Other)
  Sender: FDA-Public Use
  Company Number: AU-GE HEALTHCARE-2023CSU011036

PATIENT
  Age: 56 Year
  Sex: Female

DRUGS (5)
  1. OMNIPAQUE [Suspect]
     Active Substance: IOHEXOL
     Indication: Computerised tomogram abdomen
     Dosage: 65 ML, ONCE AT 3 ML/SEC
     Route: 042
     Dates: start: 20231031, end: 20231031
  2. OMNIPAQUE [Suspect]
     Active Substance: IOHEXOL
     Indication: Abdominal pain
  3. OMNIPAQUE [Suspect]
     Active Substance: IOHEXOL
     Indication: Abdominal distension
  4. OMNIPAQUE [Suspect]
     Active Substance: IOHEXOL
     Indication: Diverticulitis
  5. OMNIPAQUE [Suspect]
     Active Substance: IOHEXOL
     Indication: Appendicitis

REACTIONS (5)
  - Rash [Recovered/Resolved]
  - Dizziness [Recovered/Resolved]
  - Anxiety [Recovered/Resolved]
  - Dyspnoea [Recovered/Resolved]
  - Fatigue [Recovered/Resolved]

NARRATIVE: CASE EVENT DATE: 20231031
